FAERS Safety Report 6267102-9 (Version None)
Quarter: 2009Q3

REPORT INFORMATION
  Report Type: 
  Country: None (occurrence: None)
  Receive Date: 20090714
  Receipt Date: 20090701
  Transmission Date: 20100115
  Serious: Yes (Disabling, Other)
  Sender: FDA-Public Use
  Company Number: AU-PFIZER INC-2009226669

PATIENT
  Age: 60 Year

DRUGS (7)
  1. CHAMPIX [Suspect]
     Dosage: 1 MG, UNK
     Dates: start: 20081101, end: 20090226
  2. METFORMIN HYDROCHLORIDE [Concomitant]
     Dosage: 1000 MG, 2X/DAY
     Dates: end: 20090316
  3. CRESTOR [Concomitant]
     Dosage: 40 MG, 1X/DAY
  4. COVERSYL [Concomitant]
     Dosage: 8 MG, 1X/DAY
  5. COVERSYL [Concomitant]
     Dosage: 10 MG, 1X/DAY
  6. ACETYLSALICYLIC ACID [Concomitant]
     Dosage: 100 MG, 1X/DAY
  7. MAGNESIUM SULFATE [Concomitant]
     Dosage: UNK
     Dates: end: 20090501

REACTIONS (20)
  - AGEUSIA [None]
  - ARTERIOSCLEROSIS [None]
  - BLOOD PRESSURE INCREASED [None]
  - BLOOD TRIGLYCERIDES INCREASED [None]
  - CEREBRAL ATROPHY [None]
  - CEREBROVASCULAR ACCIDENT [None]
  - DIZZINESS [None]
  - EOSINOPHILIA [None]
  - GAIT DISTURBANCE [None]
  - GINGIVAL BLEEDING [None]
  - HEMIPARESIS [None]
  - IMPAIRED WORK ABILITY [None]
  - PARAESTHESIA ORAL [None]
  - SENSITIVITY OF TEETH [None]
  - SPEECH DISORDER [None]
  - TINNITUS [None]
  - TREMOR [None]
  - UPPER RESPIRATORY TRACT INFECTION [None]
  - VERTIGO [None]
  - VISUAL IMPAIRMENT [None]
